FAERS Safety Report 8406027-7 (Version None)
Quarter: 2012Q2

REPORT INFORMATION
  Report Type: 
  Country: None (occurrence: None)
  Receive Date: 20120604
  Receipt Date: 20120524
  Transmission Date: 20120825
  Serious: Yes (Other)
  Sender: FDA-Public Use
  Company Number: US-JNJFOC-20120103983

PATIENT
  Sex: Female

DRUGS (7)
  1. LEVAQUIN [Suspect]
     Indication: SINUSITIS
     Route: 048
     Dates: start: 20110101
  2. STEROIDS NOS [Suspect]
     Indication: PRODUCT USED FOR UNKNOWN INDICATION
     Route: 065
  3. DEPO-MEDROL [Suspect]
     Indication: RESPIRATORY DISORDER
     Route: 042
  4. MOMETASONE FUROATE [Suspect]
     Indication: PRODUCT USED FOR UNKNOWN INDICATION
     Route: 045
  5. METHYLPREDNISOLONE ACETATE [Suspect]
     Indication: PRODUCT USED FOR UNKNOWN INDICATION
     Route: 048
  6. LEVAQUIN [Suspect]
     Indication: UPPER RESPIRATORY TRACT INFECTION
     Route: 048
     Dates: start: 20110101
  7. PREDNISONE [Suspect]
     Indication: PRODUCT USED FOR UNKNOWN INDICATION
     Route: 048

REACTIONS (8)
  - TENDON RUPTURE [None]
  - TENOSYNOVITIS [None]
  - ROTATOR CUFF SYNDROME [None]
  - TENDONITIS [None]
  - JOINT INJURY [None]
  - JOINT SWELLING [None]
  - JOINT STIFFNESS [None]
  - VISION BLURRED [None]
